FAERS Safety Report 6152949-X (Version None)
Quarter: 2009Q2

REPORT INFORMATION
  Report Type: 
  Country: None (occurrence: None)
  Receive Date: 20090413
  Receipt Date: 20080225
  Transmission Date: 20091009
  Serious: Yes (Hospitalization)
  Sender: FDA-Public Use
  Company Number: FR-ASTRAZENECA-2009UW08884

PATIENT
  Age: 659 Month
  Sex: Male

DRUGS (2)
  1. ROSUVASTATIN CALCIUM [Suspect]
     Indication: HYPERCHOLESTEROLAEMIA
     Route: 048
     Dates: start: 20060101, end: 20061201
  2. LIPANTHYL [Suspect]
     Indication: HYPERCHOLESTEROLAEMIA
     Dates: start: 20020101, end: 20050101

REACTIONS (3)
  - BLOOD CHOLESTEROL INCREASED [None]
  - CYTOLYTIC HEPATITIS [None]
  - POLYMYOSITIS [None]
